FAERS Safety Report 18716649 (Version 1)
Quarter: 2021Q1

REPORT INFORMATION
  Report Type: Spontaneous
  Country: US (occurrence: US)
  Receive Date: 20210108
  Receipt Date: 20210108
  Transmission Date: 20210419
  Serious: No
  Sender: FDA-Public Use
  Company Number: US-ASTRAZENECA-2020SF44997

PATIENT
  Sex: Male
  Weight: 140.6 kg

DRUGS (2)
  1. FAST ACTING NOVALOG [Concomitant]
     Indication: TYPE 2 DIABETES MELLITUS
     Dosage: 12 UNITS/12 UNITS/16 UNITS ,THREE TIMES A DAY
  2. BYDUREON BCISE [Suspect]
     Active Substance: EXENATIDE
     Indication: TYPE 2 DIABETES MELLITUS
     Route: 065

REACTIONS (5)
  - Off label use [Unknown]
  - Device issue [Unknown]
  - Injection site nodule [Unknown]
  - Injection site pain [Unknown]
  - Injection site extravasation [Unknown]
